FAERS Safety Report 9631448 (Version 2)
Quarter: 2013Q4

REPORT INFORMATION
  Report Type: Spontaneous
  Country: DK (occurrence: FR)
  Receive Date: 20131018
  Receipt Date: 20131029
  Transmission Date: 20140711
  Serious: Yes (Life-Threatening, Hospitalization)
  Sender: FDA-Public Use
  Company Number: FR-FRI-1000050158

PATIENT
  Age: 21 Year
  Sex: Female

DRUGS (10)
  1. ESCITALOPRAM [Suspect]
     Route: 048
  2. ESCITALOPRAM [Suspect]
     Dosage: OVERDOSE OF 28 TABLETS
     Route: 048
     Dates: start: 20130916, end: 20130916
  3. THERALENE [Suspect]
     Route: 048
  4. THERALENE [Suspect]
     Dosage: OVERDOSE OF 27 TABLETS
     Route: 048
     Dates: start: 20130916, end: 20130916
  5. XANAX [Suspect]
     Route: 048
  6. XANAX [Suspect]
     Dosage: OVERDOSE OF 24 TABLETS
     Route: 048
     Dates: start: 20130916, end: 20130916
  7. RISPERDAL [Suspect]
     Route: 048
  8. RISPERDAL [Suspect]
     Dosage: OVERDOSE OF 20 TABLETS
     Route: 048
     Dates: start: 20130916, end: 20130916
  9. IMOVANE [Suspect]
     Route: 048
  10. IMOVANE [Suspect]
     Dosage: OVERDOSE OF 3 TABLETS
     Route: 048
     Dates: start: 20130916, end: 20130916

REACTIONS (4)
  - Cardiac disorder [Recovered/Resolved]
  - Somnolence [Recovered/Resolved]
  - Hypotonia [Recovered/Resolved]
  - Intentional overdose [Recovered/Resolved]
